FAERS Safety Report 18556773 (Version 2)
Quarter: 2020Q4

REPORT INFORMATION
  Report Type: Report from Study
  Country: BR (occurrence: BR)
  Receive Date: 20201128
  Receipt Date: 20201216
  Transmission Date: 20210114
  Serious: Yes (Other)
  Sender: FDA-Public Use
  Company Number: NVSC2020BR315555

PATIENT
  Age: 70 Year
  Sex: Male

DRUGS (5)
  1. INSULIN [Concomitant]
     Active Substance: INSULIN NOS
     Indication: PRODUCT USED FOR UNKNOWN INDICATION
     Dosage: USED MORNING AND THE NIGHT, 5 YEARS AGO
     Route: 065
  2. GALVUS MET [Suspect]
     Active Substance: METFORMIN HYDROCHLORIDE\VILDAGLIPTIN
     Indication: PRODUCT USED FOR UNKNOWN INDICATION
     Dosage: 50 MG + 850 MG, YEARS AGO
     Route: 065
  3. NEBACETIN [Concomitant]
     Active Substance: BACITRACIN ZINC\NEOMYCIN SULFATE
     Indication: PRODUCT USED FOR UNKNOWN INDICATION
     Dosage: UNK
     Route: 065
  4. FORASEQ [Suspect]
     Active Substance: BUDESONIDE\FORMOTEROL FUMARATE
     Indication: PRODUCT USED FOR UNKNOWN INDICATION
     Dosage: UNK
     Route: 065
  5. DOSS [Concomitant]
     Active Substance: DOCUSATE SODIUM
     Indication: PRODUCT USED FOR UNKNOWN INDICATION
     Dosage: (1.000 OT)
     Route: 065

REACTIONS (23)
  - Eating disorder [Unknown]
  - Limb injury [Not Recovered/Not Resolved]
  - Cyst [Unknown]
  - Yellow skin [Unknown]
  - Fall [Unknown]
  - Nasopharyngitis [Unknown]
  - Agitation [Unknown]
  - Diabetes mellitus [Not Recovered/Not Resolved]
  - Hypertension [Unknown]
  - Paraesthesia [Unknown]
  - Depressed mood [Unknown]
  - Nail discolouration [Unknown]
  - Hyperhidrosis [Unknown]
  - Dizziness [Unknown]
  - Swelling [Unknown]
  - Renal disorder [Unknown]
  - Abnormal behaviour [Unknown]
  - Blood glucose increased [Unknown]
  - Blood pressure abnormal [Not Recovered/Not Resolved]
  - Ill-defined disorder [Unknown]
  - Feeling drunk [Unknown]
  - Feeling hot [Unknown]
  - Skin discolouration [Unknown]

NARRATIVE: CASE EVENT DATE: 202007
